FAERS Safety Report 4809165-0 (Version None)
Quarter: 2005Q4

REPORT INFORMATION
  Report Type: 
  Country: None (occurrence: None)
  Receive Date: 20051025
  Receipt Date: 20050728
  Transmission Date: 20060501
  Serious: Yes (Other)
  Sender: FDA-Public Use
  Company Number: PHNU2005DE02709

PATIENT
  Age: 65 Year
  Sex: Male

DRUGS (1)
  1. LAMISIL [Suspect]
     Indication: NAIL TINEA
     Dosage: 125 MG/D
     Dates: start: 20041001, end: 20050101

REACTIONS (18)
  - ASTHENIA [None]
  - BIOPSY BONE MARROW ABNORMAL [None]
  - COUGH [None]
  - ERYTHROPOIESIS ABNORMAL [None]
  - FATIGUE [None]
  - HAEMOGLOBIN DECREASED [None]
  - HYPERHIDROSIS [None]
  - LEUKOPENIA [None]
  - LYMPHOCYTOSIS [None]
  - MEGAKARYOCYTES DECREASED [None]
  - MEGALOBLASTS INCREASED [None]
  - MYELODYSPLASTIC SYNDROME [None]
  - NASOPHARYNGITIS [None]
  - NEUTROPENIA [None]
  - PLATELET COUNT DECREASED [None]
  - RHINITIS [None]
  - SHIFT TO THE LEFT [None]
  - VIRAL INFECTION [None]
